FAERS Safety Report 6721193-7 (Version None)
Quarter: 2010Q2

REPORT INFORMATION
  Report Type: 
  Country: None (occurrence: None)
  Receive Date: 20100512
  Receipt Date: 20100512
  Transmission Date: 20101027
  Serious: Yes (Other)
  Sender: FDA-Public Use
  Company Number: None

PATIENT
  Age: 2 Month
  Sex: Male

DRUGS (1)
  1. INFANT DROP TYLENOL TYLENOL [Suspect]
     Dosage: .08 ONE TIME

REACTIONS (1)
  - HYPERSOMNIA [None]
